FAERS Safety Report 9391507 (Version 1)
Quarter: 2013Q3

REPORT INFORMATION
  Report Type: Spontaneous
  Country: JP (occurrence: JP)
  Receive Date: 20130709
  Receipt Date: 20130709
  Transmission Date: 20140515
  Serious: Yes (Other)
  Sender: FDA-Public Use
  Company Number: PHHY2013JP072643

PATIENT
  Age: 38 Year
  Sex: Male
  Weight: 70 kg

DRUGS (3)
  1. NEORAL [Suspect]
     Indication: DERMATITIS ATOPIC
     Dosage: 200 MG, DAILY
     Route: 048
  2. ETHANOL [Interacting]
  3. MINOMYCIN [Concomitant]

REACTIONS (3)
  - Drug interaction [Unknown]
  - Hepatic function abnormal [Unknown]
  - Immunosuppressant drug level increased [Unknown]
